FAERS Safety Report 8289537-5 (Version None)
Quarter: 2012Q2

REPORT INFORMATION
  Report Type: 
  Country: None (occurrence: None)
  Receive Date: 20120417
  Receipt Date: 20120409
  Transmission Date: 20120825
  Serious: Yes (Other)
  Sender: FDA-Public Use
  Company Number: US-ABBOTT-12P-163-0923325-00

PATIENT
  Age: 56 Year
  Sex: Female

DRUGS (7)
  1. ATENOLOL [Concomitant]
     Dosage: 50MG IN AM, 25MG AT LUNCH, 50MG IN PM
  2. PROTONIX [Concomitant]
     Indication: GASTROOESOPHAGEAL REFLUX DISEASE
     Dosage: 40 MG DAILY
  3. NORVASC [Suspect]
     Indication: PRODUCT USED FOR UNKNOWN INDICATION
     Dates: start: 20111101, end: 20120301
  4. LISINOPRIL [Suspect]
     Dosage: 1/2 OF 12.5MG PILL
  5. HUMIRA [Suspect]
     Indication: PSORIATIC ARTHROPATHY
     Dates: start: 20101005
  6. LISINOPRIL [Suspect]
     Indication: PRODUCT USED FOR UNKNOWN INDICATION
  7. ATENOLOL [Concomitant]
     Indication: PRODUCT USED FOR UNKNOWN INDICATION

REACTIONS (6)
  - CARDIAC FAILURE [None]
  - BLOOD POTASSIUM DECREASED [None]
  - OEDEMA PERIPHERAL [None]
  - HYPERTENSION [None]
  - PALPITATIONS [None]
  - HEADACHE [None]
